FAERS Safety Report 25641621 (Version 1)
Quarter: 2025Q3

REPORT INFORMATION
  Report Type: Report from Study
  Country: CR (occurrence: CR)
  Receive Date: 20250804
  Receipt Date: 20250804
  Transmission Date: 20251020
  Serious: Yes (Hospitalization)
  Sender: NOVARTIS
  Company Number: CR-002147023-NVSC2025CR122512

PATIENT
  Age: 25 Year
  Sex: Female

DRUGS (1)
  1. SECUKINUMAB [Suspect]
     Active Substance: SECUKINUMAB
     Indication: Hidradenitis
     Dosage: 300 MG, QMO
     Route: 058
     Dates: start: 2024

REACTIONS (9)
  - Decreased immune responsiveness [Recovered/Resolved]
  - Illness [Recovered/Resolved]
  - Malaise [Unknown]
  - Influenza [Recovering/Resolving]
  - Dehydration [Unknown]
  - Decreased appetite [Unknown]
  - Nasal congestion [Unknown]
  - Gastrointestinal infection [Unknown]
  - Agitation [Unknown]

NARRATIVE: CASE EVENT DATE: 20250301
